FAERS Safety Report 9084580 (Version 1)
Quarter: 2013Q1

REPORT INFORMATION
  Report Type: Spontaneous
  Country: JP (occurrence: JP)
  Receive Date: 20130130
  Receipt Date: 20130130
  Transmission Date: 20140127
  Serious: Yes (Other)
  Sender: FDA-Public Use
  Company Number: PHHY2013JP006152

PATIENT
  Age: 42 Year
  Sex: Male
  Weight: 111 kg

DRUGS (1)
  1. ALISKIREN [Suspect]
     Indication: HYPERTENSION
     Dosage: 150 MG, PER DAY

REACTIONS (5)
  - Hypertriglyceridaemia [Recovering/Resolving]
  - Renal impairment [Recovering/Resolving]
  - High density lipoprotein decreased [Unknown]
  - Eosinophilia [Unknown]
  - Lymphocyte stimulation test positive [Unknown]
